FAERS Safety Report 5454315-9 (Version None)
Quarter: 2007Q3

REPORT INFORMATION
  Report Type: 
  Country: None (occurrence: None)
  Receive Date: 20070917
  Receipt Date: 20060811
  Transmission Date: 20080115
  Serious: No
  Sender: FDA-Public Use
  Company Number: US-ASTRAZENECA-2006UW16093

PATIENT
  Age: 66 Year
  Sex: Female

DRUGS (4)
  1. SEROQUEL [Suspect]
     Indication: BIPOLAR DISORDER
     Route: 048
  2. SEROQUEL [Suspect]
     Indication: MOOD SWINGS
     Route: 048
  3. EFFEXOR XR [Concomitant]
  4. ATIVAN [Concomitant]

REACTIONS (1)
  - FEELING ABNORMAL [None]
